FAERS Safety Report 18297979 (Version 1)
Quarter: 2020Q3

REPORT INFORMATION
  Report Type: Report from Study
  Country: DE (occurrence: DE)
  Receive Date: 20200922
  Receipt Date: 20200922
  Transmission Date: 20201103
  Serious: Yes (Death)
  Sender: FDA-Public Use
  Company Number: DE-JNJFOC-20200707699

PATIENT
  Age: 86 Year
  Sex: Female
  Weight: 57 kg

DRUGS (1)
  1. RIVAROXABAN [Suspect]
     Active Substance: RIVAROXABAN
     Indication: ATRIAL FIBRILLATION
     Dosage: 20 MG, QD
     Route: 048
     Dates: end: 20200615

REACTIONS (5)
  - Intraventricular haemorrhage [Fatal]
  - Basal ganglia haemorrhage [Fatal]
  - Hypertensive crisis [Fatal]
  - Coma [Fatal]
  - Posthaemorrhagic hydrocephalus [Fatal]

NARRATIVE: CASE EVENT DATE: 20200615
